FAERS Safety Report 6837827-2 (Version None)
Quarter: 2010Q3

REPORT INFORMATION
  Report Type: 
  Country: None (occurrence: None)
  Receive Date: 20100713
  Receipt Date: 20070522
  Transmission Date: 20110219
  Serious: No
  Sender: FDA-Public Use
  Company Number: US-PFIZER INC-2007042168

PATIENT
  Sex: Female
  Weight: 90.7 kg

DRUGS (6)
  1. CHANTIX [Suspect]
     Indication: SMOKING CESSATION THERAPY
     Route: 048
     Dates: start: 20070514
  2. DIGOXIN [Concomitant]
     Route: 048
  3. ASPIRIN [Suspect]
     Route: 048
  4. CALCIUM [Concomitant]
     Route: 048
  5. CENTRUM [Concomitant]
     Route: 048
  6. TYLENOL PM [Suspect]
     Route: 048

REACTIONS (4)
  - ABNORMAL DREAMS [None]
  - CONSTIPATION [None]
  - DRUG INEFFECTIVE [None]
  - THROAT IRRITATION [None]
